FAERS Safety Report 6767103-8 (Version None)
Quarter: 2010Q2

REPORT INFORMATION
  Report Type: 
  Country: None (occurrence: None)
  Receive Date: 20100614
  Receipt Date: 20100416
  Transmission Date: 20101027
  Serious: No
  Sender: FDA-Public Use
  Company Number: US-JNJFOC-20100306543

PATIENT
  Sex: Male
  Weight: 77.11 kg

DRUGS (9)
  1. INVEGA [Suspect]
     Indication: PSYCHOTIC DISORDER
     Route: 048
  2. INVEGA [Suspect]
     Route: 048
  3. INVEGA [Suspect]
     Route: 048
  4. INVEGA [Suspect]
     Route: 048
  5. INVEGA [Suspect]
     Indication: SCHIZOPHRENIA
     Route: 048
  6. INVEGA [Suspect]
     Route: 048
  7. INVEGA [Suspect]
     Route: 048
  8. INVEGA [Suspect]
     Route: 048
  9. DEPAKOTE [Concomitant]
     Indication: ANXIETY
     Route: 048

REACTIONS (7)
  - DECREASED APPETITE [None]
  - EXTRAPYRAMIDAL DISORDER [None]
  - INSOMNIA [None]
  - LACRIMATION INCREASED [None]
  - OBSESSIVE-COMPULSIVE DISORDER [None]
  - TIC [None]
  - TRANCE [None]
